FAERS Safety Report 8332644-9 (Version None)
Quarter: 2012Q1

REPORT INFORMATION
  Report Type: 
  Country: None (occurrence: None)
  Receive Date: 20120327
  Receipt Date: 20110310
  Transmission Date: 20120608
  Serious: Yes (Other)
  Sender: FDA-Public Use
  Company Number: PHEH2009US16978

PATIENT
  Age: 76 Year
  Sex: Female

DRUGS (1)
  1. GLEEVEC [Suspect]
     Indication: CHRONIC MYELOID LEUKAEMIA
     Dosage: 300 MG DAILY, ORAL
     Route: 048

REACTIONS (6)
  - PERIORBITAL OEDEMA [None]
  - OEDEMA [None]
  - EYE OEDEMA [None]
  - FEELING COLD [None]
  - THYROID DISORDER [None]
  - ANAEMIA [None]
